FAERS Safety Report 9563133 (Version 1)
Quarter: 2013Q3

REPORT INFORMATION
  Report Type: Spontaneous
  Country: US (occurrence: US)
  Receive Date: 20130927
  Receipt Date: 20130927
  Transmission Date: 20140515
  Serious: No
  Sender: FDA-Public Use
  Company Number: US-BRISTOL-MYERS SQUIBB COMPANY-17316126

PATIENT
  Sex: Male

DRUGS (1)
  1. ONGLYZA TABS 2.5 MG [Suspect]

REACTIONS (2)
  - Dizziness [Unknown]
  - Pollakiuria [Unknown]
